FAERS Safety Report 7369563-0 (Version None)
Quarter: 2011Q1

REPORT INFORMATION
  Report Type: 
  Country: None (occurrence: None)
  Receive Date: 20110323
  Receipt Date: 20110225
  Transmission Date: 20110831
  Serious: No
  Sender: FDA-Public Use
  Company Number: US-B.I. PHARMACEUTICALS,INC./RIDGEFIELD-2011-BP-07082BP

PATIENT
  Age: 63 Year
  Sex: Female

DRUGS (6)
  1. PRADAXA [Suspect]
     Indication: ATRIAL FIBRILLATION
     Dosage: 300 MG
     Route: 048
     Dates: start: 20110201, end: 20110201
  2. ASACOL [Concomitant]
     Indication: CROHN'S DISEASE
  3. DIGOXIN [Concomitant]
     Indication: ARRHYTHMIA
  4. BYSTOLIC [Concomitant]
     Indication: CARDIAC DISORDER
  5. CRESTOR [Concomitant]
     Indication: BLOOD CHOLESTEROL INCREASED
  6. MICARDIS [Concomitant]
     Indication: HYPERTENSION

REACTIONS (1)
  - HEADACHE [None]
